FAERS Safety Report 22350158 (Version 1)
Quarter: 2023Q2

REPORT INFORMATION
  Report Type: Spontaneous
  Country: SI (occurrence: SI)
  Receive Date: 20230522
  Receipt Date: 20230522
  Transmission Date: 20230721
  Serious: Yes (Hospitalization)
  Sender: FDA-Public Use
  Company Number: SI-BAYER-2023A069545

PATIENT
  Age: 88 Year
  Sex: Female

DRUGS (7)
  1. XARELTO [Suspect]
     Active Substance: RIVAROXABAN
     Indication: Atrial fibrillation
     Dosage: 15 MG
     Route: 048
  2. ASPIRIN [Concomitant]
     Active Substance: ASPIRIN
     Dosage: 100 MG, QD
  3. CLOPIDOGREL [Concomitant]
     Active Substance: CLOPIDOGREL BISULFATE
     Dosage: 75 MG
  4. BISOPROLOL [Concomitant]
     Active Substance: BISOPROLOL
     Dosage: 2.5 MG
  5. ROSUVASTATIN [Concomitant]
     Active Substance: ROSUVASTATIN
     Dosage: 20 MG
  6. PANTOPRAZOLE [Concomitant]
     Active Substance: PANTOPRAZOLE
  7. BROMAZEPAM [Concomitant]
     Active Substance: BROMAZEPAM
     Indication: Insomnia
     Dosage: 1.5 MG

REACTIONS (2)
  - Acute myocardial infarction [Unknown]
  - Haemoptysis [Unknown]

NARRATIVE: CASE EVENT DATE: 20230301
